FAERS Safety Report 10304509 (Version 1)
Quarter: 2014Q3

REPORT INFORMATION
  Report Type: Spontaneous
  Country: US (occurrence: US)
  Receive Date: 20140715
  Receipt Date: 20140715
  Transmission Date: 20150326
  Serious: No
  Sender: FDA-Public Use
  Company Number: US-009507513-1407USA003932

PATIENT
  Age: 14 Year
  Sex: Female

DRUGS (1)
  1. NUVARING [Suspect]
     Active Substance: ETHINYL ESTRADIOL\ETONOGESTREL
     Indication: MENSTRUATION IRREGULAR
     Dosage: CONTINUOUSLY
     Route: 067
     Dates: start: 20140610

REACTIONS (3)
  - Device expulsion [Unknown]
  - Blood urine [Unknown]
  - Vulvovaginal swelling [Unknown]

NARRATIVE: CASE EVENT DATE: 2014
